FAERS Safety Report 6028999-0 (Version None)
Quarter: 2008Q4

REPORT INFORMATION
  Report Type: 
  Country: None (occurrence: None)
  Receive Date: 20081231
  Receipt Date: 20081217
  Transmission Date: 20090506
  Serious: Yes (Other)
  Sender: FDA-Public Use
  Company Number: 8040643

PATIENT
  Sex: Female

DRUGS (2)
  1. KEPPRA [Suspect]
     Dosage: 2000 MG /D
     Dates: start: 20081101
  2. PREGABALIN [Concomitant]

REACTIONS (1)
  - HYPOTHERMIA [None]
